FAERS Safety Report 23150855 (Version 2)
Quarter: 2023Q4

REPORT INFORMATION
  Report Type: Spontaneous
  Country: IN (occurrence: IN)
  Receive Date: 20231106
  Receipt Date: 20231129
  Transmission Date: 20240110
  Serious: Yes (Other)
  Sender: FDA-Public Use
  Company Number: IN-PFIZER INC-202200767661

PATIENT
  Age: 31 Year
  Sex: Male

DRUGS (3)
  1. LORLATINIB [Suspect]
     Active Substance: LORLATINIB
     Indication: Lung neoplasm malignant
     Dosage: 25 MG, 1X/DAY FOR 6 MONTHS
     Route: 048
     Dates: start: 20220522
  2. LORLATINIB [Suspect]
     Active Substance: LORLATINIB
     Dosage: 100 MG, 1X/DAY
     Route: 048
  3. GRANICIP [Concomitant]
     Indication: Vomiting
     Dosage: BEFORE MEALS, MAXIMUM TWICE A DAY

REACTIONS (4)
  - Body mass index increased [Unknown]
  - Respiratory rate increased [Unknown]
  - Weight increased [Unknown]
  - Off label use [Unknown]

NARRATIVE: CASE EVENT DATE: 20220522
